FAERS Safety Report 12564570 (Version 1)
Quarter: 2016Q3

REPORT INFORMATION
  Report Type: Spontaneous
  Country: US (occurrence: None)
  Receive Date: 20160715
  Receipt Date: 20160715
  Transmission Date: 20161109
  Serious: Yes (Hospitalization)
  Sender: FDA-Public Use
  Company Number: None

PATIENT
  Age: 63 Year
  Sex: Male

DRUGS (9)
  1. DEXAMETHASONE. [Concomitant]
     Active Substance: DEXAMETHASONE
  2. DIGOXIN. [Concomitant]
     Active Substance: DIGOXIN
  3. POMALIDOMIDE [Concomitant]
     Active Substance: POMALIDOMIDE
  4. FAMOTIDINE. [Concomitant]
     Active Substance: FAMOTIDINE
  5. POMALYST [Suspect]
     Active Substance: POMALIDOMIDE
     Indication: PLASMA CELL MYELOMA
     Dosage: DAILY X 21D, OFF 7D
     Route: 048
     Dates: start: 201510, end: 201601
  6. CLINDAMYCIN [Concomitant]
     Active Substance: CLINDAMYCIN\CLINDAMYCIN PHOSPHATE
  7. CIPROFLOXACIN. [Concomitant]
     Active Substance: CIPROFLOXACIN
  8. DILTIAZEM. [Concomitant]
     Active Substance: DILTIAZEM
  9. FILGRASTIM [Concomitant]
     Active Substance: FILGRASTIM

REACTIONS (4)
  - Fluid overload [None]
  - Pancytopenia [None]
  - Hypoxia [None]
  - Dyspnoea [None]

NARRATIVE: CASE EVENT DATE: 20160114
